FAERS Safety Report 5465679-4 (Version None)
Quarter: 2007Q3

REPORT INFORMATION
  Report Type: 
  Country: None (occurrence: None)
  Receive Date: 20070924
  Receipt Date: 20070913
  Transmission Date: 20080115
  Serious: Yes (Other)
  Sender: FDA-Public Use
  Company Number: AU-ROCHE-512338

PATIENT
  Age: 73 Year
  Sex: Male

DRUGS (1)
  1. XELODA [Suspect]
     Route: 065
     Dates: start: 20070813, end: 20070819

REACTIONS (6)
  - CORNEAL DEGENERATION [None]
  - EYE DEGENERATIVE DISORDER [None]
  - INCISION SITE COMPLICATION [None]
  - SCLERAL DEGENERATION [None]
  - ULCERATIVE KERATITIS [None]
  - WOUND SECRETION [None]
